FAERS Safety Report 5843313-9 (Version None)
Quarter: 2008Q3

REPORT INFORMATION
  Report Type: 
  Country: None (occurrence: None)
  Receive Date: 20080813
  Receipt Date: 20080804
  Transmission Date: 20090109
  Serious: Yes (Other)
  Sender: FDA-Public Use
  Company Number: US-BAYER-200829915NA

PATIENT
  Age: 61 Year
  Sex: Male
  Weight: 79 kg

DRUGS (15)
  1. CAMPATH [Suspect]
     Indication: CHRONIC LYMPHOCYTIC LEUKAEMIA
     Dosage: TOTAL DAILY DOSE: 3 MG
     Route: 058
     Dates: start: 20080602, end: 20080602
  2. CAMPATH [Suspect]
     Dosage: TOTAL DAILY DOSE: 10 MG
     Route: 058
     Dates: start: 20080604, end: 20080604
  3. CAMPATH [Suspect]
     Dosage: TOTAL DAILY DOSE: 30 MG
     Route: 058
     Dates: start: 20080606, end: 20080606
  4. CAMPATH [Suspect]
     Dosage: TOTAL DAILY DOSE: 30 MG
     Route: 058
     Dates: start: 20080804
  5. CAMPATH [Suspect]
     Dosage: TOTAL DAILY DOSE: 30 MG
     Route: 058
     Dates: start: 20080609, end: 20080728
  6. APAP TAB [Concomitant]
     Indication: PREMEDICATION
  7. BENADRYL [Concomitant]
     Indication: PREMEDICATION
  8. LORATADINE [Concomitant]
     Indication: PREMEDICATION
  9. BACTRIM DS [Concomitant]
     Indication: INFECTION PROPHYLAXIS
     Route: 048
  10. FAMVIR [Concomitant]
     Indication: INFECTION PROPHYLAXIS
     Dosage: TOTAL DAILY DOSE: 500 MG
     Route: 048
  11. GRIFULVIN V [Concomitant]
     Dosage: TOTAL DAILY DOSE: 500 MG
     Dates: start: 20080623, end: 20080723
  12. REGULAR INSULIN [Concomitant]
  13. GLUCOTROL [Concomitant]
     Dosage: TOTAL DAILY DOSE: 10 MG
  14. LISINOPRIL [Concomitant]
     Dosage: TOTAL DAILY DOSE: 10 MG
  15. METFORMIN HCL [Concomitant]
     Dosage: TOTAL DAILY DOSE: 1000 MG

REACTIONS (2)
  - FEBRILE NEUTROPENIA [None]
  - PNEUMONIA [None]
